FAERS Safety Report 14303116 (Version 4)
Quarter: 2018Q3

REPORT INFORMATION
  Report Type: Report from Study
  Country: JP (occurrence: JP)
  Receive Date: 20171219
  Receipt Date: 20180711
  Transmission Date: 20181010
  Serious: Yes (Death)
  Sender: FDA-Public Use
  Company Number: JP-JT-EVA201701699KERYXP-002

PATIENT
  Age: 72 Year
  Sex: Male
  Weight: 49 kg

DRUGS (7)
  1. RIONA [Suspect]
     Active Substance: FERRIC CITRATE ANHYDROUS
     Indication: HYPERPHOSPHATAEMIA
     Dosage: 250 MG, TID
     Route: 048
     Dates: start: 20150310, end: 20160317
  2. NESP [Concomitant]
     Active Substance: DARBEPOETIN ALFA
     Indication: NEPHROGENIC ANAEMIA
     Dosage: 5 MICRO?G, UNK
     Route: 042
  3. FESIN [Concomitant]
     Active Substance: IRON SUCROSE
     Indication: MINERAL SUPPLEMENTATION
     Dosage: 40 MG, UNK
     Route: 042
  4. NEXIUM [Concomitant]
     Active Substance: ESOMEPRAZOLE MAGNESIUM
     Indication: HYPERCHLORHYDRIA
     Dosage: 20 MG, QD
     Route: 048
     Dates: start: 20160317, end: 20160327
  5. NESP [Concomitant]
     Active Substance: DARBEPOETIN ALFA
     Dosage: 10 MICRO?G, UNK
     Route: 042
  6. NESP [Concomitant]
     Active Substance: DARBEPOETIN ALFA
     Dosage: 10 MICRO?G, UNK
     Route: 042
  7. URIEF [Concomitant]
     Active Substance: SILODOSIN
     Dosage: 8 MG, QD
     Route: 048
     Dates: end: 20160327

REACTIONS (1)
  - Pneumonia [Fatal]

NARRATIVE: CASE EVENT DATE: 20160317
